FAERS Safety Report 8275263 (Version 2)
Quarter: 2012Q4

REPORT INFORMATION
  Report Type: Report from Study
  Country: JP (occurrence: JP)
  Receive Date: 20111205
  Receipt Date: 20120910
  Transmission Date: 20130627
  Serious: Yes (Life-Threatening, Other)
  Sender: FDA-Public Use
  Company Number: JP-NOVOPROD-340245

PATIENT
  Age: 72 Year
  Sex: Female

DRUGS (2)
  1. LIRAGLUTIDE FLEXPEN [Suspect]
     Indication: TYPE 2 DIABETES MELLITUS
     Dosage: 0.3 mg, qd
     Route: 058
     Dates: start: 20111102
  2. LIRAGLUTIDE FLEXPEN [Suspect]
     Dosage: 0.3 mg, qd
     Route: 058
     Dates: start: 20111122, end: 20111123

REACTIONS (4)
  - Anaphylactic shock [Recovering/Resolving]
  - Erythema [Recovering/Resolving]
  - Swelling face [Recovering/Resolving]
  - Pruritus [Recovering/Resolving]
